FAERS Safety Report 16660878 (Version 1)
Quarter: 2019Q3

REPORT INFORMATION
  Report Type: Report from Study
  Country: DE (occurrence: DE)
  Receive Date: 20190802
  Receipt Date: 20190802
  Transmission Date: 20191004
  Serious: Yes (Death)
  Sender: FDA-Public Use
  Company Number: DE-PFIZER INC-2019327221

PATIENT
  Age: 31 Year
  Sex: Male

DRUGS (6)
  1. U-47700 [Suspect]
     Active Substance: U-47700
  2. NORDOXEPIN [Suspect]
     Active Substance: DESMETHYLDOXEPIN
  3. NORTRIPTYLINE [Suspect]
     Active Substance: NORTRIPTYLINE
  4. PREGABALIN. [Suspect]
     Active Substance: PREGABALIN
     Dosage: UNK
  5. DOXEPIN [Suspect]
     Active Substance: DOXEPIN
     Dosage: UNK
  6. AMITRIPTYLINE [Suspect]
     Active Substance: AMITRIPTYLINE

REACTIONS (1)
  - Toxicity to various agents [Fatal]
